FAERS Safety Report 19695653 (Version 1)
Quarter: 2021Q3

REPORT INFORMATION
  Report Type: Spontaneous
  Country: CA (occurrence: CA)
  Receive Date: 20210813
  Receipt Date: 20210813
  Transmission Date: 20211014
  Serious: Yes (Hospitalization)
  Sender: FDA-Public Use
  Company Number: CA-TEVA-2021-CA-1939618

PATIENT
  Age: 38 Year
  Sex: Male
  Weight: 110 kg

DRUGS (4)
  1. AZATHIOPRINE SODIUM. [Concomitant]
     Active Substance: AZATHIOPRINE SODIUM
     Dosage: 200 MILLIGRAM DAILY;
  2. PREDNISONE. [Concomitant]
     Active Substance: PREDNISONE
  3. FLAGYL [Suspect]
     Active Substance: METRONIDAZOLE\METRONIDAZOLE HYDROCHLORIDE
     Indication: CROHN^S DISEASE
     Route: 065
  4. CIPROFLOXACIN. [Suspect]
     Active Substance: CIPROFLOXACIN
     Indication: CROHN^S DISEASE
     Route: 065

REACTIONS (4)
  - Off label use [Unknown]
  - Intestinal obstruction [Unknown]
  - Drug ineffective [Unknown]
  - Product use in unapproved indication [Unknown]
